FAERS Safety Report 17892271 (Version 3)
Quarter: 2021Q1

REPORT INFORMATION
  Report Type: Report from Study
  Country: GB (occurrence: GB)
  Receive Date: 20200612
  Receipt Date: 20210326
  Transmission Date: 20210419
  Serious: Yes (Other)
  Sender: FDA-Public Use
  Company Number: NVSC2020GB163659

PATIENT
  Sex: Male

DRUGS (1)
  1. COSENTYX [Suspect]
     Active Substance: SECUKINUMAB
     Indication: ANKYLOSING SPONDYLITIS
     Dosage: 150 MG, QMO
     Route: 058
     Dates: start: 20171221

REACTIONS (8)
  - COVID-19 [Recovering/Resolving]
  - Malaise [Recovering/Resolving]
  - Back pain [Unknown]
  - Dyspnoea [Unknown]
  - Hypokinesia [Unknown]
  - Ankylosing spondylitis [Unknown]
  - Product dose omission issue [Unknown]
  - Pain [Unknown]
